FAERS Safety Report 10429231 (Version 1)
Quarter: 2014Q3

REPORT INFORMATION
  Report Type: Spontaneous
  Country: US (occurrence: None)
  Receive Date: 20140902
  Receipt Date: 20140902
  Transmission Date: 20150326
  Serious: Yes (Hospitalization)
  Sender: FDA-Public Use
  Company Number: None

PATIENT
  Age: 71 Year
  Sex: Male

DRUGS (20)
  1. HEPARIN [Suspect]
     Active Substance: HEPARIN SODIUM
     Indication: PROPHYLAXIS
     Dosage: 2300 UNITS/HR CONTINOUS IV
     Route: 042
     Dates: start: 20140706, end: 20140707
  2. AMIODARONE [Concomitant]
     Active Substance: AMIODARONE
  3. FAMOTIDINE. [Concomitant]
     Active Substance: FAMOTIDINE
  4. PERCOCET [Concomitant]
     Active Substance: ACETAMINOPHEN\OXYCODONE HYDROCHLORIDE
  5. MAGNESIUM OXIDE. [Concomitant]
     Active Substance: MAGNESIUM OXIDE
  6. MAGNESIUM SULFATE [Concomitant]
     Active Substance: MAGNESIUM SULFATE
  7. METRONIDAZOLE. [Concomitant]
     Active Substance: METRONIDAZOLE
  8. AMLODIPINE [Concomitant]
     Active Substance: AMLODIPINE BESYLATE
  9. ATORVASTATIN [Concomitant]
     Active Substance: ATORVASTATIN
  10. BISACODYL. [Concomitant]
     Active Substance: BISACODYL
  11. ONDANSETRON [Concomitant]
     Active Substance: ONDANSETRON
  12. HYDROMORPHONE [Concomitant]
     Active Substance: HYDROMORPHONE
  13. LEVOTHYROXINE [Concomitant]
     Active Substance: LEVOTHYROXINE
  14. ACETAMINOPHEN. [Concomitant]
     Active Substance: ACETAMINOPHEN
  15. BUMETANIDE. [Concomitant]
     Active Substance: BUMETANIDE
  16. DIPHENHYDRAMINE [Concomitant]
     Active Substance: DIPHENHYDRAMINE
  17. METOPROLOL [Concomitant]
     Active Substance: METOPROLOL
  18. FUROSEMIDE. [Concomitant]
     Active Substance: FUROSEMIDE
  19. CEFEPIME [Concomitant]
     Active Substance: CEFEPIME\CEFEPIME HYDROCHLORIDE
  20. DIATRIZOATE [Concomitant]

REACTIONS (3)
  - Atrial fibrillation [None]
  - Retroperitoneal haemorrhage [None]
  - Syncope [None]

NARRATIVE: CASE EVENT DATE: 20140707
